FAERS Safety Report 25988371 (Version 1)
Quarter: 2025Q4

REPORT INFORMATION
  Report Type: Spontaneous
  Country: US (occurrence: US)
  Receive Date: 20251103
  Receipt Date: 20251103
  Transmission Date: 20260118
  Serious: Yes (Other)
  Sender: AMGEN
  Company Number: US-AMGEN-USASP2025212932

PATIENT
  Sex: Female

DRUGS (1)
  1. UPLIZNA [Suspect]
     Active Substance: INEBILIZUMAB-CDON
     Indication: Neuromyelitis optica spectrum disorder
     Dosage: 300 MILLIGRAM,  DAY 1, DAY 15 THEN EVERY SIX MONTHS FROM FIRST DOSE
     Route: 040

REACTIONS (2)
  - Seizure [Unknown]
  - Insomnia [Unknown]
